FAERS Safety Report 11814066 (Version 1)
Quarter: 2015Q4

REPORT INFORMATION
  Report Type: Report from Study
  Country: US (occurrence: US)
  Receive Date: 20151209
  Receipt Date: 20151209
  Transmission Date: 20160305
  Serious: Yes (Hospitalization, Other)
  Sender: FDA-Public Use
  Company Number: US-ABBVIE-15K-163-1514300-00

PATIENT
  Sex: Female

DRUGS (1)
  1. HUMIRA [Suspect]
     Active Substance: ADALIMUMAB
     Indication: PRODUCT USED FOR UNKNOWN INDICATION
     Route: 058
     Dates: end: 201510

REACTIONS (10)
  - Staphylococcal infection [Not Recovered/Not Resolved]
  - Blood urea increased [Unknown]
  - Acarodermatitis [Recovered/Resolved]
  - Acute kidney injury [Unknown]
  - Feeding disorder [Not Recovered/Not Resolved]
  - Pruritus [Recovered/Resolved]
  - Blood creatinine increased [Unknown]
  - Blood phosphorus increased [Unknown]
  - Peripheral swelling [Not Recovered/Not Resolved]
  - Device failure [Unknown]

NARRATIVE: CASE EVENT DATE: 201510
